FAERS Safety Report 10707550 (Version 2)
Quarter: 2015Q1

REPORT INFORMATION
  Report Type: Report from Study
  Country: CL (occurrence: CL)
  Receive Date: 20150113
  Receipt Date: 20150226
  Transmission Date: 20150721
  Serious: Yes (Other)
  Sender: FDA-Public Use
  Company Number: CL-SA-2015SA003145

PATIENT
  Age: 30 Year
  Sex: Male

DRUGS (1)
  1. AUBAGIO [Suspect]
     Active Substance: TERIFLUNOMIDE
     Indication: MULTIPLE SCLEROSIS
     Route: 048
     Dates: start: 20140515, end: 20150115

REACTIONS (3)
  - Drug ineffective [Unknown]
  - Optic neuritis [Recovered/Resolved]
  - Spinal cord injury cervical [Unknown]

NARRATIVE: CASE EVENT DATE: 20141223
